FAERS Safety Report 21953307 (Version 2)
Quarter: 2023Q2

REPORT INFORMATION
  Report Type: Other
  Country: KZ (occurrence: KZ)
  Receive Date: 20230204
  Receipt Date: 20230524
  Transmission Date: 20230721
  Serious: Yes (Other)
  Sender: FDA-Public Use
  Company Number: KZ-MACLEODS PHARMA EU LTD-MAC2023039562

PATIENT

DRUGS (5)
  1. PYRAZINAMIDE [Suspect]
     Active Substance: PYRAZINAMIDE
     Indication: Tuberculosis of intrathoracic lymph nodes
     Dosage: 500 MILLIGRAM, QD (RK-LS-5 NO. 024322)
     Route: 048
     Dates: start: 20210722, end: 20221003
  2. LINEZOLID [Concomitant]
     Active Substance: LINEZOLID
     Indication: Product used for unknown indication
     Dosage: 192 MILLIGRAM, QD (600 MG 192 MG POWDER 1 TIME PER DAY (DAILY)
     Route: 065
  3. CLOFAZIMINE [Concomitant]
     Active Substance: CLOFAZIMINE
     Indication: Product used for unknown indication
     Dosage: 1 DOSAGE FORM, QOD
     Route: 065
  4. CYCLOSERINE [Concomitant]
     Active Substance: CYCLOSERINE
     Indication: Product used for unknown indication
     Dosage: 1 DOSAGE FORM, QD
     Route: 065
  5. DELAMANID [Concomitant]
     Active Substance: DELAMANID
     Indication: Product used for unknown indication
     Dosage: 1 DOSAGE FORM, QD
     Route: 065

REACTIONS (1)
  - Hepatitis toxic [Not Recovered/Not Resolved]
